FAERS Safety Report 4356154-9 (Version None)
Quarter: 2004Q2

REPORT INFORMATION
  Report Type: 
  Country: None (occurrence: None)
  Receive Date: 20040506
  Receipt Date: 20040427
  Transmission Date: 20050107
  Serious: Yes (Hospitalization)
  Sender: FDA-Public Use
  Company Number: ZONI001383

PATIENT
  Age: 7 Year
  Sex: Male

DRUGS (2)
  1. EXCEGRAN (ZONISAMIDE) [Suspect]
     Indication: EPILEPSY
     Dosage: 160 MG DAILY ORAL
     Route: 048
     Dates: start: 20011227, end: 20020224
  2. VALPROIC ACID [Concomitant]

REACTIONS (7)
  - BACTERIAL INFECTION [None]
  - BLOOD IMMUNOGLOBULIN A DECREASED [None]
  - DISSEMINATED INTRAVASCULAR COAGULATION [None]
  - INTESTINAL OBSTRUCTION [None]
  - KIDNEY ENLARGEMENT [None]
  - NEPHRITIS [None]
  - URINARY TRACT INFECTION [None]
